FAERS Safety Report 17818804 (Version 1)
Quarter: 2020Q2

REPORT INFORMATION
  Report Type: Report from Study
  Country: US (occurrence: US)
  Receive Date: 20200522
  Receipt Date: 20200522
  Transmission Date: 20200714
  Serious: No
  Sender: FDA-Public Use
  Company Number: NVSC2020US141431

PATIENT
  Sex: Male

DRUGS (1)
  1. MAYZENT [Suspect]
     Active Substance: SIPONIMOD
     Indication: PRIMARY PROGRESSIVE MULTIPLE SCLEROSIS
     Dosage: 1 MG, QD
     Route: 048

REACTIONS (1)
  - Inappropriate schedule of product administration [Not Recovered/Not Resolved]
